FAERS Safety Report 4501892-8 (Version None)
Quarter: 2004Q4

REPORT INFORMATION
  Report Type: 
  Country: None (occurrence: None)
  Receive Date: 20041116
  Receipt Date: 20041108
  Transmission Date: 20050328
  Serious: Yes (Congenital Anomaly)
  Sender: FDA-Public Use
  Company Number: 200413352EU

PATIENT
  Age: 29 Year
  Sex: Female

DRUGS (3)
  1. LANTUS [Suspect]
     Indication: DIABETES MELLITUS INSULIN-DEPENDENT
     Route: 058
     Dates: start: 20010129, end: 20040501
  2. INSULIN RAPID ^HOECHST MARION ROUSSEL^ [Concomitant]
     Indication: DIABETES MELLITUS INSULIN-DEPENDENT
     Dosage: DOSE: 5-6-5
     Route: 058
  3. HUMAN INSULIN [Concomitant]
     Indication: DIABETES MELLITUS INSULIN-DEPENDENT
     Dates: start: 20040501, end: 20040601

REACTIONS (7)
  - ABORTION SPONTANEOUS [None]
  - COMPLICATIONS OF MATERNAL EXPOSURE TO THERAPEUTIC DRUGS [None]
  - GLYCOSYLATED HAEMOGLOBIN DECREASED [None]
  - HEART DISEASE CONGENITAL [None]
  - HYPOGLYCAEMIA [None]
  - MATERNAL DRUGS AFFECTING FOETUS [None]
  - PREGNANCY [None]
